FAERS Safety Report 6705755-9 (Version None)
Quarter: 2010Q2

REPORT INFORMATION
  Report Type: 
  Country: None (occurrence: None)
  Receive Date: 20100503
  Receipt Date: 20081218
  Transmission Date: 20101027
  Serious: Yes (Other)
  Sender: FDA-Public Use
  Company Number: US-BAYER-200837259NA

PATIENT
  Age: 38 Year
  Sex: Female
  Weight: 66 kg

DRUGS (1)
  1. MIRENA [Suspect]
     Indication: CONTRACEPTION
     Dosage: 20 MCG/DAY CONTINUOUS
     Route: 015
     Dates: start: 20081006

REACTIONS (10)
  - AFFECTIVE DISORDER [None]
  - ASTHENIA [None]
  - HEADACHE [None]
  - HYPERHIDROSIS [None]
  - HYPOAESTHESIA [None]
  - NAUSEA [None]
  - NERVOUSNESS [None]
  - PRESYNCOPE [None]
  - PROCEDURAL PAIN [None]
  - VAGINAL HAEMORRHAGE [None]
